FAERS Safety Report 6360755-6 (Version None)
Quarter: 2009Q3

REPORT INFORMATION
  Report Type: 
  Country: None (occurrence: None)
  Receive Date: 20090918
  Receipt Date: 20090911
  Transmission Date: 20100115
  Serious: Yes (Hospitalization)
  Sender: FDA-Public Use
  Company Number: US-JNJFOC-20090904336

PATIENT
  Age: 50 Year
  Sex: Female

DRUGS (7)
  1. HALDOL [Suspect]
     Indication: DRUG USE FOR UNKNOWN INDICATION
     Route: 048
  2. EFFEXOR XR [Interacting]
     Indication: DRUG USE FOR UNKNOWN INDICATION
     Route: 048
  3. KADIAN [Suspect]
     Route: 048
     Dates: start: 19990101
  4. KADIAN [Suspect]
     Indication: PAIN
     Route: 048
     Dates: start: 19990101
  5. WELLBUTRIN SR [Suspect]
     Indication: DRUG USE FOR UNKNOWN INDICATION
     Route: 048
  6. BACLOFEN [Suspect]
     Indication: PAIN
     Route: 048
  7. NORCO [Suspect]
     Indication: PAIN
     Dosage: 1-2 TABLETS EVERY
     Route: 048

REACTIONS (2)
  - DRUG INTERACTION [None]
  - RESPIRATORY DEPRESSION [None]
